FAERS Safety Report 4356347-0 (Version None)
Quarter: 2004Q2

REPORT INFORMATION
  Report Type: 
  Country: None (occurrence: None)
  Receive Date: 20040506
  Receipt Date: 20040422
  Transmission Date: 20050107
  Serious: Yes (Death, Other)
  Sender: FDA-Public Use
  Company Number: USA-2004-0014093

PATIENT
  Age: 47 Year
  Sex: Male
  Weight: 95.2 kg

DRUGS (7)
  1. OXYCONTIN [Suspect]
     Dosage: UNK MG
     Dates: start: 19990901, end: 20020301
  2. HYDROCODONE BITARTRATE [Suspect]
  3. METHADONE (METHADONE) [Suspect]
  4. DIAZEPAM [Suspect]
  5. DIHYDROCODEINE/CAFFEINE/ACETAMINOPHEN (PARACETAMOL, CAFFEINE, DIHYDROC [Suspect]
  6. NICOTINE [Suspect]
  7. DOXEPIN (DOXEPIN) [Suspect]

REACTIONS (4)
  - ACCIDENT [None]
  - ACCIDENTAL OVERDOSE [None]
  - DEPENDENCE [None]
  - MULTIPLE DRUG OVERDOSE [None]
